FAERS Safety Report 19265585 (Version 1)
Quarter: 2021Q2

REPORT INFORMATION
  Report Type: Spontaneous
  Country: JP (occurrence: JP)
  Receive Date: 20210517
  Receipt Date: 20210517
  Transmission Date: 20210717
  Serious: Yes (Life-Threatening, Hospitalization, Other)
  Sender: FDA-Public Use
  Company Number: JP-ACCORD-225042

PATIENT
  Age: 54 Year
  Sex: Female
  Weight: 77.5 kg

DRUGS (8)
  1. OLMESARTAN/OLMESARTAN MEDOXOMIL [Suspect]
     Active Substance: OLMESARTAN MEDOXOMIL
     Indication: HYPERTENSION
     Dosage: 340 MG, 1 TOTAL
     Route: 048
  2. OLMESARTAN [Suspect]
     Active Substance: OLMESARTAN
     Indication: SUICIDE ATTEMPT
     Route: 048
  3. OLMESARTAN [Suspect]
     Active Substance: OLMESARTAN
     Indication: HYPERTENSION
     Route: 048
  4. AMLODIPINE [Suspect]
     Active Substance: AMLODIPINE BESYLATE
     Indication: SUICIDE ATTEMPT
     Route: 048
  5. AMLODIPINE [Suspect]
     Active Substance: AMLODIPINE BESYLATE
     Indication: HYPERTENSION
     Route: 048
  6. AMLODIPINE [Suspect]
     Active Substance: AMLODIPINE BESYLATE
     Indication: HYPERTENSION
     Dosage: 345 MG, 1 TOTAL
     Route: 048
  7. BROTIZOLAM [Concomitant]
     Active Substance: BROTIZOLAM
     Indication: SUICIDE ATTEMPT
     Route: 048
  8. ETIZOLAM [Concomitant]
     Active Substance: ETIZOLAM
     Indication: SUICIDE ATTEMPT
     Route: 048

REACTIONS (7)
  - Suicide attempt [Unknown]
  - Intentional overdose [Unknown]
  - Hypotension [Recovered/Resolved]
  - Metabolic acidosis [Recovered/Resolved]
  - Distributive shock [Recovered/Resolved]
  - Toxicity to various agents [Recovered/Resolved]
  - Mental status changes [Recovered/Resolved]
